FAERS Safety Report 12669518 (Version 1)
Quarter: 2016Q3

REPORT INFORMATION
  Report Type: Spontaneous
  Country: US (occurrence: US)
  Receive Date: 20160819
  Receipt Date: 20160819
  Transmission Date: 20161109
  Serious: Yes (Other)
  Sender: FDA-Public Use
  Company Number: US-TEVA-684879USA

PATIENT
  Age: 33 Year
  Sex: Male

DRUGS (2)
  1. COPAXONE [Suspect]
     Active Substance: GLATIRAMER ACETATE
     Indication: MULTIPLE SCLEROSIS
     Route: 058
     Dates: start: 20160415, end: 20160710
  2. KLONOPIN [Concomitant]
     Active Substance: CLONAZEPAM

REACTIONS (5)
  - Depression [Unknown]
  - Abasia [Unknown]
  - Central nervous system lesion [Unknown]
  - Muscle spasms [Unknown]
  - Migraine [Unknown]

NARRATIVE: CASE EVENT DATE: 201605
